FAERS Safety Report 5039203-4 (Version None)
Quarter: 2006Q2

REPORT INFORMATION
  Report Type: 
  Country: None (occurrence: None)
  Receive Date: 20060623
  Receipt Date: 20060612
  Transmission Date: 20061013
  Serious: Yes (Hospitalization, Other)
  Sender: FDA-Public Use
  Company Number: 2005130197

PATIENT
  Age: 61 Year
  Sex: Male
  Weight: 147.419 kg

DRUGS (5)
  1. BEXTRA [Suspect]
     Indication: MYALGIA
     Dosage: 20 MG (20 MG 1 IN 1 D)
     Dates: start: 20030107
  2. LORABID [Suspect]
     Indication: CYST
  3. ZOCOR [Concomitant]
  4. COZAAR [Concomitant]
  5. FLONASE [Concomitant]

REACTIONS (15)
  - ANAEMIA [None]
  - ANAPHYLACTIC SHOCK [None]
  - AORTIC DILATATION [None]
  - AORTIC VALVE INCOMPETENCE [None]
  - ATRIAL FIBRILLATION [None]
  - ATRIOVENTRICULAR BLOCK COMPLETE [None]
  - BODY TEMPERATURE INCREASED [None]
  - CARDIAC TAMPONADE [None]
  - CHEST DISCOMFORT [None]
  - DEEP VEIN THROMBOSIS [None]
  - DRUG HYPERSENSITIVITY [None]
  - DYSPNOEA EXERTIONAL [None]
  - PERICARDIAL EFFUSION [None]
  - STEVENS-JOHNSON SYNDROME [None]
  - VENTRICULAR TACHYCARDIA [None]
